FAERS Safety Report 5676897-4 (Version None)
Quarter: 2008Q1

REPORT INFORMATION
  Report Type: 
  Country: None (occurrence: None)
  Receive Date: 20080324
  Receipt Date: 20080313
  Transmission Date: 20080703
  Serious: Yes (Hospitalization)
  Sender: FDA-Public Use
  Company Number: JP-MERCK-0712USA02037

PATIENT
  Age: 83 Year
  Sex: Male
  Weight: 50 kg

DRUGS (6)
  1. COZAAR [Suspect]
     Route: 048
  2. COZAAR [Suspect]
     Route: 048
  3. SOLANAX [Suspect]
     Route: 048
  4. BAYCARON [Suspect]
     Route: 048
  5. GLUFAST [Suspect]
     Route: 048
  6. AMLODIN [Suspect]
     Route: 048

REACTIONS (7)
  - ACCIDENTAL OVERDOSE [None]
  - BLOOD CREATINE INCREASED [None]
  - BLOOD CREATININE ABNORMAL [None]
  - BRADYCARDIA [None]
  - HYPOTENSION [None]
  - LOSS OF CONSCIOUSNESS [None]
  - URINE OUTPUT DECREASED [None]
